FAERS Safety Report 5382135-2 (Version None)
Quarter: 2007Q3

REPORT INFORMATION
  Report Type: 
  Country: None (occurrence: None)
  Receive Date: 20070705
  Receipt Date: 20070622
  Transmission Date: 20080115
  Serious: Yes (Other)
  Sender: FDA-Public Use
  Company Number: GXKR2007GB05396

PATIENT
  Age: 61 Year
  Sex: Female
  Weight: 86 kg

DRUGS (17)
  1. CLARITHROMYCIN [Suspect]
     Indication: LOWER RESPIRATORY TRACT INFECTION
     Dosage: 1 DF, BID, ORAL
     Route: 048
     Dates: start: 20070531, end: 20070604
  2. GLICLAZIDE (NGX) (GLICLAZIDE) UNKNOWN [Suspect]
     Dosage: 0.5 DF, BID
     Dates: start: 20051102
  3. METFORMIN HYDROCHLORIDE [Suspect]
     Dosage: 2 DF, BID
     Dates: start: 20040705
  4. AMOXICILLIN [Concomitant]
  5. BENDROFLUMETHIAZIDE (BENDROFLUMETHIAZIDE) [Concomitant]
  6. DIHYDROCODEINE COMPOUND [Concomitant]
  7. FLOXACILLIN SODIUM [Concomitant]
  8. GAVISCON [Concomitant]
  9. OMEPRAZOLE [Concomitant]
  10. PREDNISOLONE [Concomitant]
  11. SERETIDE ^ALLEN + HANBURYS LTD^ (FLUTICASONE PROPIONATE, SALMETEROL XI [Concomitant]
  12. SIMVASTATIN [Concomitant]
  13. SODIUM CHLORIDE 0.9% [Concomitant]
  14. SPIRIVA [Concomitant]
  15. VALSARTAN [Suspect]
  16. VENTOLIN (SALBUTAMOL SULFATE) [Concomitant]
  17. FUROSEMIDE [Concomitant]

REACTIONS (2)
  - DRUG INTERACTION [None]
  - HYPOGLYCAEMIA [None]
